FAERS Safety Report 8302417-1 (Version None)
Quarter: 2012Q2

REPORT INFORMATION
  Report Type: 
  Country: None (occurrence: None)
  Receive Date: 20120420
  Receipt Date: 20120417
  Transmission Date: 20120825
  Serious: Yes (Hospitalization, Other)
  Sender: FDA-Public Use
  Company Number: US-BAYER-201021115NA

PATIENT
  Age: 20 Year
  Sex: Female
  Weight: 90.703 kg

DRUGS (7)
  1. CALCIUM CARBONATE [Concomitant]
     Indication: DYSPEPSIA
     Dosage: UNK
     Dates: start: 20090101
  2. ACE INHIBITOR NOS [Concomitant]
  3. YASMIN [Suspect]
     Dosage: UNK
     Dates: start: 20070901, end: 20080501
  4. YASMIN [Suspect]
     Dosage: UNK
     Dates: start: 20080206, end: 20081125
  5. YASMIN [Suspect]
     Indication: CONTRACEPTION
     Dosage: UNK UNK, UNK
     Route: 048
     Dates: start: 20070918, end: 20081208
  6. NAPROXEN [Concomitant]
  7. ASPIRIN [Concomitant]
     Dosage: 81 MG, UNK
     Route: 048
     Dates: start: 20080101

REACTIONS (4)
  - SUPRAVENTRICULAR TACHYCARDIA [None]
  - CHOLECYSTECTOMY [None]
  - CHOLECYSTITIS CHRONIC [None]
  - DEEP VEIN THROMBOSIS [None]
